FAERS Safety Report 5691990-8 (Version None)
Quarter: 2008Q1

REPORT INFORMATION
  Report Type: 
  Country: None (occurrence: None)
  Receive Date: 20080331
  Receipt Date: 20080128
  Transmission Date: 20080703
  Serious: Yes (Other)
  Sender: FDA-Public Use
  Company Number: 2008AP000313

PATIENT
  Age: 31 Year
  Sex: Female

DRUGS (3)
  1. PAROXETINE HCL [Suspect]
     Dosage: PO; 20 MG;PO;QD
     Route: 048
     Dates: start: 19971201
  2. PAROXETINE HCL [Suspect]
     Dosage: PO; 20 MG;PO;QD
     Route: 048
     Dates: start: 20020517
  3. PAROXETINE HCL [Suspect]
     Dosage: PO; 20 MG;PO;QD
     Route: 048
     Dates: start: 20050301

REACTIONS (1)
  - DRUG WITHDRAWAL SYNDROME [None]
